FAERS Safety Report 10945115 (Version 1)
Quarter: 2015Q1

REPORT INFORMATION
  Report Type: Spontaneous
  Country: US (occurrence: None)
  Receive Date: 20150212
  Receipt Date: 20150212
  Transmission Date: 20150721
  Serious: Yes (Hospitalization)
  Sender: FDA-Public Use
  Company Number: TPA2011A00679

PATIENT
  Sex: Male

DRUGS (1)
  1. ULORIC [Suspect]
     Active Substance: FEBUXOSTAT
     Route: 048
     Dates: start: 20100215

REACTIONS (2)
  - Acute kidney injury [None]
  - Gouty tophus [None]

NARRATIVE: CASE EVENT DATE: 20110214
